FAERS Safety Report 4346616-2 (Version None)
Quarter: 2004Q1

REPORT INFORMATION
  Report Type: 
  Country: None (occurrence: None)
  Receive Date: 20040325
  Receipt Date: 20040226
  Transmission Date: 20041129
  Serious: No
  Sender: FDA-Public Use
  Company Number: USA030639024

PATIENT
  Age: 78 Year
  Sex: Female
  Weight: 52 kg

DRUGS (14)
  1. FORTEO [Suspect]
     Indication: OSTEOPOROSIS
     Dosage: 20 UG/DAY
     Dates: start: 20030602
  2. QUININE [Concomitant]
  3. SYNTHYROID (LEVOTHYROXINE SODIUM) [Concomitant]
  4. PRILOSEC [Concomitant]
  5. ATACAND [Concomitant]
  6. LEVAQUIN [Concomitant]
  7. TYLENOL [Concomitant]
  8. GLUCOSAMINE CHONDROITIN [Concomitant]
  9. CALCIUM [Concomitant]
  10. MULTI-VITAMINS [Concomitant]
  11. MULTI-VITAMIN [Concomitant]
  12. FOLIC ACID [Concomitant]
  13. VITAMIN A [Concomitant]
  14. K-DUR 10 [Concomitant]

REACTIONS (12)
  - ALOPECIA [None]
  - FATIGUE [None]
  - GINGIVAL BLEEDING [None]
  - HAEMOGLOBIN INCREASED [None]
  - INJECTION SITE HAEMORRHAGE [None]
  - INJECTION SITE STINGING [None]
  - INSOMNIA [None]
  - MICTURITION URGENCY [None]
  - MUSCLE CRAMP [None]
  - POLLAKIURIA [None]
  - RENAL CYST [None]
  - WEIGHT DECREASED [None]
